FAERS Safety Report 6552181-1 (Version None)
Quarter: 2010Q1

REPORT INFORMATION
  Report Type: 
  Country: None (occurrence: None)
  Receive Date: 20100121
  Receipt Date: 20100111
  Transmission Date: 20100710
  Serious: Yes (Death)
  Sender: FDA-Public Use
  Company Number: 004801

PATIENT
  Age: 50 Year
  Sex: Female

DRUGS (8)
  1. ALPRAZOLAM [Suspect]
  2. ACETAMINOPHEN AND HYDROCODONE BITARTRATE [Suspect]
  3. ACETAMINOPHEN- PROPOXYPHENE HCL TAB [Suspect]
  4. MORPHINE [Suspect]
  5. SERTRALINE HCL [Suspect]
  6. MEPROBAMATE [Suspect]
  7. HYDROMORPHONE HYDROCHLORIDE [Suspect]
  8. DIPHENHYDRAMINE [Suspect]

REACTIONS (1)
  - INCORRECT DOSE ADMINISTERED [None]
